FAERS Safety Report 10286673 (Version 1)
Quarter: 2014Q3

REPORT INFORMATION
  Report Type: Spontaneous
  Country: DK (occurrence: DK)
  Receive Date: 20140709
  Receipt Date: 20140709
  Transmission Date: 20150326
  Serious: Yes (Other)
  Sender: FDA-Public Use
  Company Number: DK-MYLANLABS-2014S1015325

PATIENT
  Sex: Male

DRUGS (2)
  1. SILDENAFIL [Suspect]
     Active Substance: SILDENAFIL
     Indication: ERECTILE DYSFUNCTION
     Dosage: DOSIS: PN, STYRKE: 100 MG
     Route: 048
     Dates: start: 20130731
  2. LITHIUM CITRATE. [Concomitant]
     Active Substance: LITHIUM CITRATE

REACTIONS (2)
  - Pollakiuria [Unknown]
  - Phimosis [Unknown]
